FAERS Safety Report 22194896 (Version 1)
Quarter: 2023Q2

REPORT INFORMATION
  Report Type: Spontaneous
  Country: DE (occurrence: DE)
  Receive Date: 20230411
  Receipt Date: 20230411
  Transmission Date: 20230721
  Serious: Yes (Other)
  Sender: FDA-Public Use
  Company Number: DE-002147023-NVSC2023DE077130

PATIENT
  Sex: Female
  Weight: 47 kg

DRUGS (4)
  1. PREDNISOLONE [Suspect]
     Active Substance: PREDNISOLONE
     Indication: Colitis ulcerative
     Dosage: 7.5 MG, QD (19. - 33.1. GESTATIONAL WEEK)
     Route: 048
  2. INFLIXIMAB [Suspect]
     Active Substance: INFLIXIMAB
     Indication: Colitis ulcerative
     Dosage: 2.5 MG/KG, Q4W (19-32 GESTATIONAL WEEK)
     Route: 048
     Dates: start: 20220523, end: 20220822
  3. MISOPROSTOL [Concomitant]
     Active Substance: MISOPROSTOL
     Indication: Labour induction
     Dosage: UNK (33.1 - 33.2 GESTATIONAL WEEK)
     Route: 048
     Dates: start: 20220830, end: 20220831
  4. FOLIC ACID [Concomitant]
     Active Substance: FOLIC ACID
     Indication: Prophylaxis of neural tube defect
     Dosage: UNK (6.-33.1 GESTATIONAL WEEK)
     Route: 048

REACTIONS (3)
  - Stillbirth [Unknown]
  - Foetal death [Unknown]
  - Exposure during pregnancy [Unknown]
